FAERS Safety Report 12272222 (Version 3)
Quarter: 2016Q2

REPORT INFORMATION
  Report Type: Report from Study
  Country: US (occurrence: US)
  Receive Date: 20160415
  Receipt Date: 20160505
  Transmission Date: 20160815
  Serious: Yes (Hospitalization, Other)
  Sender: FDA-Public Use
  Company Number: US-ABBVIE-16P-163-1603159-00

PATIENT
  Age: 38 Year
  Sex: Male
  Weight: 83.99 kg

DRUGS (2)
  1. VIEKIRA PAK [Suspect]
     Active Substance: DASABUVIR\OMBITASVIR\PARITAPREVIR\RITONAVIR
     Indication: CHRONIC HEPATITIS C
     Dosage: PER MANUFACTURER PACKAGE DIRECTIONS IN THE MORNING AND EVENING
     Route: 048
     Dates: start: 20160225
  2. RIBAVIRIN. [Concomitant]
     Active Substance: RIBAVIRIN
     Indication: PRODUCT USED FOR UNKNOWN INDICATION

REACTIONS (8)
  - Fall [Unknown]
  - Increased appetite [Unknown]
  - Dizziness [Unknown]
  - Dysarthria [Unknown]
  - Dyspnoea [Unknown]
  - Loss of consciousness [Unknown]
  - Flank pain [Unknown]
  - Thrombosis [Unknown]

NARRATIVE: CASE EVENT DATE: 20160401
